FAERS Safety Report 4402051-X (Version None)
Quarter: 2004Q3

REPORT INFORMATION
  Report Type: 
  Country: None (occurrence: None)
  Receive Date: 20040719
  Receipt Date: 20040719
  Transmission Date: 20050211
  Serious: Yes (Other)
  Sender: FDA-Public Use
  Company Number: None

PATIENT
  Sex: Male
  Weight: 29.4838 kg

DRUGS (1)
  1. STRATTERA [Suspect]
     Indication: ATTENTION DEFICIT/HYPERACTIVITY DISORDER
     Dosage: 18 MG BY MOUTH 2 X DAY
     Route: 048

REACTIONS (3)
  - CONDITION AGGRAVATED [None]
  - DYSGRAPHIA [None]
  - TREMOR [None]
